FAERS Safety Report 4279162-5 (Version None)
Quarter: 2004Q1

REPORT INFORMATION
  Report Type: 
  Country: None (occurrence: None)
  Receive Date: 20040127
  Receipt Date: 20030523
  Transmission Date: 20041129
  Serious: Yes (Death, Hospitalization)
  Sender: FDA-Public Use
  Company Number: JP-BRISTOL-MYERS SQUIBB COMPANY-12285052

PATIENT
  Age: 53 Year
  Sex: Male
  Weight: 48 kg

DRUGS (4)
  1. ZERIT [Suspect]
     Indication: ACQUIRED IMMUNODEFICIENCY SYNDROME
     Route: 048
     Dates: start: 20020822, end: 20030131
  2. EPIVIR [Suspect]
     Indication: ACQUIRED IMMUNODEFICIENCY SYNDROME
     Route: 048
     Dates: start: 20020715, end: 20030131
  3. RETROVIR [Concomitant]
     Route: 048
     Dates: start: 20020715, end: 20020821
  4. KALETRA [Concomitant]
     Route: 048
     Dates: start: 20020715, end: 20030131

REACTIONS (3)
  - CHEST X-RAY ABNORMAL [None]
  - COMPUTERISED TOMOGRAM ABNORMAL [None]
  - INFECTION [None]
